FAERS Safety Report 4630919-8 (Version None)
Quarter: 2005Q2

REPORT INFORMATION
  Report Type: 
  Country: None (occurrence: None)
  Receive Date: 20050407
  Receipt Date: 20050407
  Transmission Date: 20051028
  Serious: Yes (Hospitalization)
  Sender: FDA-Public Use
  Company Number: None

PATIENT
  Age: 8 Year
  Sex: Male
  Weight: 22 kg

DRUGS (2)
  1. ARIPIPRAZOLE [Suspect]
     Indication: ATTENTION DEFICIT/HYPERACTIVITY DISORDER
     Dosage: 2.5 MG PO DAILY
     Route: 048
     Dates: start: 20040304, end: 20040306
  2. STRATERA [Concomitant]

REACTIONS (4)
  - DIARRHOEA [None]
  - DYSSTASIA [None]
  - DYSTONIA [None]
  - FACIAL PALSY [None]
